FAERS Safety Report 22156976 (Version 2)
Quarter: 2023Q2

REPORT INFORMATION
  Report Type: Spontaneous
  Country: JP (occurrence: None)
  Receive Date: 20230330
  Receipt Date: 20230501
  Transmission Date: 20230722
  Serious: Yes (Other)
  Sender: FDA-Public Use
  Company Number: 2023A073508

PATIENT
  Age: 81 Year
  Sex: Female

DRUGS (1)
  1. ROXADUSTAT [Suspect]
     Active Substance: ROXADUSTAT
     Indication: Nephrogenic anaemia
     Route: 048
     Dates: start: 20201201, end: 20230307

REACTIONS (1)
  - Central hypothyroidism [Recovered/Resolved]

NARRATIVE: CASE EVENT DATE: 20230307
